FAERS Safety Report 9358142 (Version 1)
Quarter: 2013Q2

REPORT INFORMATION
  Report Type: Spontaneous
  Country: US (occurrence: US)
  Receive Date: 20130620
  Receipt Date: 20130620
  Transmission Date: 20140414
  Serious: No
  Sender: FDA-Public Use
  Company Number: US-PFIZER INC-2013180991

PATIENT
  Sex: Female

DRUGS (5)
  1. LEVOXYL [Suspect]
     Indication: THYROID DISORDER
     Dosage: 112 UG, 1X/DAY
     Dates: end: 20130611
  2. SYNTHROID [Suspect]
     Indication: THYROID DISORDER
     Dosage: UNK
  3. ARMOUR THYROID [Suspect]
     Indication: THYROID DISORDER
     Dosage: UNK
  4. LEVOTHROID [Suspect]
     Indication: THYROID DISORDER
     Dosage: UNK
  5. THYROLAR [Suspect]
     Indication: THYROID DISORDER
     Dosage: UNK

REACTIONS (5)
  - Drug intolerance [Unknown]
  - Influenza like illness [Unknown]
  - Hypersensitivity [Unknown]
  - Swelling [Recovering/Resolving]
  - Urticaria [Recovering/Resolving]
